FAERS Safety Report 7979680-X (Version None)
Quarter: 2011Q4

REPORT INFORMATION
  Report Type: 
  Country: None (occurrence: None)
  Receive Date: 20111214
  Receipt Date: 20111207
  Transmission Date: 20120403
  Serious: Yes (Hospitalization, Other)
  Sender: FDA-Public Use
  Company Number: JP-NAPPMUNDI-MAG-2011-0001831

PATIENT
  Sex: Female

DRUGS (10)
  1. SYMBICORT [Concomitant]
     Dosage: UNK
     Route: 055
     Dates: start: 20111114, end: 20111117
  2. ACETAMINOPHEN [Concomitant]
     Dosage: UNK
     Route: 065
     Dates: start: 20111114, end: 20111117
  3. HUSCODE [Concomitant]
     Dosage: 6 TABLET, DAILY
     Route: 055
     Dates: start: 20111114, end: 20111117
  4. THEOPHYLLINE [Suspect]
     Indication: PNEUMONIA MYCOPLASMAL
     Dosage: 800 MG, DAILY
     Route: 048
     Dates: start: 20111114, end: 20111117
  5. CLARITHROMYCIN [Interacting]
     Indication: PNEUMONIA MYCOPLASMAL
     Dosage: 400 MG, DAILY
     Route: 048
     Dates: start: 20111114, end: 20111117
  6. EPINASTINE HYDROCHLORIDE [Concomitant]
     Dosage: 20 MG, DAILY
     Route: 048
     Dates: start: 20111114, end: 20111117
  7. CHINESE HERBAL MEDICINE [Interacting]
     Indication: PRODUCT USED FOR UNKNOWN INDICATION
     Route: 065
  8. EMPYNASE                           /00394801/ [Concomitant]
     Dosage: 3 TABLET, DAILY
     Route: 048
     Dates: start: 20111114, end: 20111117
  9. ONON [Interacting]
     Indication: PRODUCT USED FOR UNKNOWN INDICATION
     Dosage: 225 MG, DAILY
     Route: 048
     Dates: start: 20111114, end: 20111117
  10. SINGULAIR [Concomitant]
     Dosage: 10 MG, DAILY
     Route: 048
     Dates: start: 20111114, end: 20111117

REACTIONS (3)
  - DRUG INTERACTION [None]
  - ERYTHEMA [None]
  - RHABDOMYOLYSIS [None]
